FAERS Safety Report 4834491-9 (Version None)
Quarter: 2005Q4

REPORT INFORMATION
  Report Type: 
  Country: None (occurrence: None)
  Receive Date: 20051122
  Receipt Date: 20041229
  Transmission Date: 20060501
  Serious: No
  Sender: FDA-Public Use
  Company Number: US-BRISTOL-MYERS SQUIBB COMPANY-12808747

PATIENT
  Age: 64 Year
  Sex: Female
  Weight: 91 kg

DRUGS (19)
  1. PRAVACHOL [Suspect]
     Indication: BLOOD CHOLESTEROL INCREASED
     Route: 048
     Dates: end: 20041108
  2. TRICOR [Suspect]
     Indication: BLOOD CHOLESTEROL INCREASED
     Route: 048
     Dates: end: 20041108
  3. ZETIA [Suspect]
     Indication: BLOOD CHOLESTEROL INCREASED
     Dates: end: 20041108
  4. PROTONIX [Concomitant]
  5. ALTACE [Concomitant]
  6. IMITREX [Concomitant]
  7. LASIX [Concomitant]
  8. HUMALOG [Concomitant]
  9. ATENOLOL [Concomitant]
  10. ATIVAN [Concomitant]
  11. SYNTHROID [Concomitant]
  12. ASPIRIN [Concomitant]
  13. CALCIUM GLUCONATE [Concomitant]
  14. MULTI-VITAMINS [Concomitant]
  15. LEXAPRO [Concomitant]
  16. EFFEXOR [Concomitant]
  17. PAXIL [Concomitant]
  18. PROZAC [Concomitant]
  19. WELLBUTRIN [Concomitant]

REACTIONS (7)
  - ABDOMINAL PAIN UPPER [None]
  - CRYING [None]
  - HYPERSOMNIA [None]
  - MIGRAINE [None]
  - MUSCULAR WEAKNESS [None]
  - MYALGIA [None]
  - VISUAL ACUITY REDUCED [None]
